FAERS Safety Report 9995809 (Version 2)
Quarter: 2014Q3

REPORT INFORMATION
  Report Type: Spontaneous
  Country: US (occurrence: US)
  Receive Date: 20140311
  Receipt Date: 20140904
  Transmission Date: 20150326
  Serious: Yes (Life-Threatening, Hospitalization, Other)
  Sender: FDA-Public Use
  Company Number: US-BAYER-2014-035486

PATIENT
  Age: 40 Year
  Sex: Female
  Weight: 77.98 kg

DRUGS (11)
  1. KEFLEX [Concomitant]
     Active Substance: CEPHALEXIN
  2. YAZ [Suspect]
     Active Substance: DROSPIRENONE\ETHINYL ESTRADIOL
     Indication: PREMENSTRUAL SYNDROME
  3. ADVAIR HFA [Concomitant]
     Active Substance: FLUTICASONE PROPIONATE\SALMETEROL XINAFOATE
     Indication: ASTHMA
     Dosage: 100/50 BID AS NEEDED
     Dates: start: 20070612
  4. IRON [IRON] [Concomitant]
  5. DARVOCET [Concomitant]
     Active Substance: ACETAMINOPHEN\PROPOXYPHENE HYDROCHLORIDE
  6. SINGULAIR [Concomitant]
     Active Substance: MONTELUKAST SODIUM
     Indication: MULTIPLE ALLERGIES
  7. ADVIL [IBUPROFEN] [Concomitant]
     Active Substance: IBUPROFEN
     Indication: PAIN IN EXTREMITY
     Dosage: UNK UNK, PRN
  8. SINGULAIR [Concomitant]
     Active Substance: MONTELUKAST SODIUM
     Indication: ASTHMA
     Dosage: UNK
     Route: 048
     Dates: start: 20070612
  9. YAZ [Suspect]
     Active Substance: DROSPIRENONE\ETHINYL ESTRADIOL
     Indication: PREMENSTRUAL DYSPHORIC DISORDER
     Dosage: UNK
     Dates: start: 200703, end: 200706
  10. AMBIEN [Concomitant]
     Active Substance: ZOLPIDEM TARTRATE
     Indication: SLEEP DISORDER THERAPY
  11. ZYRTEK [Concomitant]
     Indication: SEASONAL ALLERGY

REACTIONS (14)
  - Deep vein thrombosis [Recovered/Resolved]
  - Abdominal pain [None]
  - Anxiety [None]
  - Injury [Recovered/Resolved]
  - Pain [Recovered/Resolved]
  - Pain [None]
  - Vaginal haemorrhage [None]
  - Thrombophlebitis superficial [Recovered/Resolved]
  - Thrombosis [None]
  - Peripheral swelling [Not Recovered/Not Resolved]
  - General physical health deterioration [Recovered/Resolved]
  - Subclavian vein thrombosis [Recovered/Resolved]
  - Emotional distress [None]
  - Axillary vein thrombosis [Recovered/Resolved]

NARRATIVE: CASE EVENT DATE: 200706
